FAERS Safety Report 22237385 (Version 1)
Quarter: 2023Q2

REPORT INFORMATION
  Report Type: Spontaneous
  Country: GB (occurrence: None)
  Receive Date: 20230421
  Receipt Date: 20230421
  Transmission Date: 20230722
  Serious: Yes (Other)
  Sender: FDA-Public Use
  Company Number: GB-ROCHE-3329987

PATIENT
  Age: 30 Year
  Sex: Male

DRUGS (2)
  1. AVASTIN [Suspect]
     Active Substance: BEVACIZUMAB
     Indication: Product used for unknown indication
     Route: 050
  2. AVASTIN [Suspect]
     Active Substance: BEVACIZUMAB
     Route: 050

REACTIONS (4)
  - Off label use [Unknown]
  - Macular dystrophy congenital [Unknown]
  - Schizophrenia [Unknown]
  - Choroidal neovascularisation [Unknown]
